FAERS Safety Report 24771422 (Version 1)
Quarter: 2024Q4

REPORT INFORMATION
  Report Type: Spontaneous
  Country: US (occurrence: US)
  Receive Date: 20241224
  Receipt Date: 20241224
  Transmission Date: 20250114
  Serious: Yes (Hospitalization, Other)
  Sender: SANOFI AVENTIS
  Company Number: US-SA-2024SA378969

PATIENT
  Age: 38 Year
  Sex: Female

DRUGS (1)
  1. DUPIXENT [Suspect]
     Active Substance: DUPILUMAB
     Indication: Asthma
     Dosage: 300 MG, QOW
     Route: 058
     Dates: start: 202211

REACTIONS (7)
  - Pneumonia [Unknown]
  - Asthma [Recovering/Resolving]
  - Eczema [Unknown]
  - Nasal polyps [Unknown]
  - Infection [Unknown]
  - Panic attack [Unknown]
  - Injection site pain [Unknown]
